FAERS Safety Report 5808750-7 (Version None)
Quarter: 2008Q3

REPORT INFORMATION
  Report Type: 
  Country: None (occurrence: None)
  Receive Date: 20080714
  Receipt Date: 20080704
  Transmission Date: 20090109
  Serious: Yes (Other)
  Sender: FDA-Public Use
  Company Number: B0527462A

PATIENT
  Sex: Female

DRUGS (3)
  1. NIQUITIN CQ CLEAR 21MG [Suspect]
     Indication: TOBACCO USER
     Dosage: 1PAT PER DAY
     Route: 062
     Dates: start: 20080627
  2. DICLOFLEX [Concomitant]
     Route: 065
  3. ACETAMINOPHEN W/ CODEINE [Concomitant]
     Route: 065

REACTIONS (10)
  - ABNORMAL DREAMS [None]
  - DIZZINESS [None]
  - ENURESIS [None]
  - HALLUCINATION [None]
  - INCONTINENCE [None]
  - INSOMNIA [None]
  - LOSS OF CONSCIOUSNESS [None]
  - MALAISE [None]
  - VISUAL IMPAIRMENT [None]
  - VOMITING [None]
